FAERS Safety Report 10520050 (Version 3)
Quarter: 2015Q1

REPORT INFORMATION
  Report Type: Report from Study
  Country: DE (occurrence: DE)
  Receive Date: 20141015
  Receipt Date: 20150126
  Transmission Date: 20150720
  Serious: Yes (Hospitalization, Other)
  Sender: FDA-Public Use
  Company Number: DE-ABBVIE-14K-062-1293778-00

PATIENT
  Age: 25 Year
  Sex: Female
  Weight: 72 kg

DRUGS (3)
  1. HUMIRA [Suspect]
     Active Substance: ADALIMUMAB
     Indication: CROHN^S DISEASE
     Route: 058
     Dates: start: 201101, end: 201311
  2. AZATHIOPRINE. [Concomitant]
     Active Substance: AZATHIOPRINE
     Indication: CROHN^S DISEASE
     Route: 048
     Dates: start: 20130829, end: 20140807
  3. PANTOZOL [Concomitant]
     Active Substance: PANTOPRAZOLE SODIUM
     Indication: PROPHYLAXIS
     Route: 048
     Dates: start: 20140819, end: 20140831

REACTIONS (10)
  - Anal fistula [Recovered/Resolved]
  - Ileal stenosis [Recovered/Resolved]
  - Impaired healing [Recovered/Resolved]
  - Hyperalbuminaemia [Unknown]
  - Pyrexia [Unknown]
  - Vomiting [Unknown]
  - Ascites [Unknown]
  - Impaired healing [Recovered/Resolved]
  - Abdominal lymphadenopathy [Unknown]
  - Pelvic abscess [Unknown]

NARRATIVE: CASE EVENT DATE: 201101
